FAERS Safety Report 8341295-1 (Version None)
Quarter: 2012Q2

REPORT INFORMATION
  Report Type: 
  Country: None (occurrence: None)
  Receive Date: 20120507
  Receipt Date: 20091113
  Transmission Date: 20120825
  Serious: Yes (Other)
  Sender: FDA-Public Use
  Company Number: US-TEVA-2009025276

PATIENT
  Sex: Female

DRUGS (3)
  1. ALOXI [Suspect]
     Indication: PROPHYLACTIC CHEMOTHERAPY
  2. DECADRON [Concomitant]
     Indication: PROPHYLACTIC CHEMOTHERAPY
  3. TREANDA [Suspect]
     Indication: CHRONIC LYMPHOCYTIC LEUKAEMIA
     Route: 042
     Dates: start: 20090928

REACTIONS (1)
  - RASH [None]
